FAERS Safety Report 6976841-3 (Version None)
Quarter: 2010Q3

REPORT INFORMATION
  Report Type: 
  Country: None (occurrence: None)
  Receive Date: 20100910
  Receipt Date: 20100902
  Transmission Date: 20110219
  Serious: Yes (Hospitalization)
  Sender: FDA-Public Use
  Company Number: A0880368A

PATIENT
  Age: 37 Year
  Sex: Male
  Weight: 56.1 kg

DRUGS (8)
  1. PAZOPANIB [Suspect]
     Indication: RENAL CANCER
     Route: 048
     Dates: start: 20100723
  2. LOPRESSOR [Concomitant]
     Dates: start: 20100517
  3. HYDROCHLOROTHIAZIDE [Concomitant]
     Dates: start: 20100517
  4. COMPAZINE [Concomitant]
     Dates: start: 20100806
  5. MUPIROCIN [Concomitant]
     Route: 061
     Dates: start: 20100901
  6. KETOCONAZOLE [Concomitant]
     Route: 061
     Dates: start: 20100901
  7. KETOCONAZOLE [Concomitant]
     Route: 061
     Dates: start: 20100804
  8. HYDROCORTISONE [Concomitant]
     Route: 061
     Dates: start: 20100804

REACTIONS (5)
  - ABDOMINAL PAIN [None]
  - CALCULUS URETERIC [None]
  - FUNGAL TEST POSITIVE [None]
  - NAUSEA [None]
  - VOMITING [None]
